FAERS Safety Report 7262450-8 (Version None)
Quarter: 2011Q1

REPORT INFORMATION
  Report Type: 
  Country: None (occurrence: None)
  Receive Date: 20110130
  Receipt Date: 20101118
  Transmission Date: 20110831
  Serious: No
  Sender: FDA-Public Use
  Company Number: US-ABBOTT-10P-163-0686447-00

PATIENT
  Age: 37 Year
  Sex: Female

DRUGS (6)
  1. LIALDA [Concomitant]
     Indication: CROHN'S DISEASE
     Dosage: 4 TABLETS DAILY
  2. CREON [Concomitant]
     Indication: PANCREATITIS
  3. PREVACID [Concomitant]
     Indication: DYSPEPSIA
  4. LOMOTIL [Concomitant]
     Indication: DIARRHOEA
  5. ZOFRAN [Concomitant]
     Indication: NAUSEA
  6. HUMIRA [Suspect]
     Indication: CROHN'S DISEASE
     Dates: start: 20100901

REACTIONS (2)
  - HEADACHE [None]
  - MUSCLE SPASMS [None]
